FAERS Safety Report 6984380-9 (Version None)
Quarter: 2010Q3

REPORT INFORMATION
  Report Type: 
  Country: None (occurrence: None)
  Receive Date: 20100915
  Receipt Date: 20100126
  Transmission Date: 20110219
  Serious: Yes (Other)
  Sender: FDA-Public Use
  Company Number: US-MYLANLABS-2010S1001386

PATIENT
  Age: 64 Year
  Sex: Female

DRUGS (7)
  1. PREMARIN [Suspect]
     Indication: HORMONE REPLACEMENT THERAPY
     Dates: start: 19970101, end: 20020101
  2. PROVERA [Suspect]
     Indication: HORMONE REPLACEMENT THERAPY
     Dates: start: 19970101, end: 20020101
  3. ESTROPIPATE [Suspect]
     Indication: HORMONE REPLACEMENT THERAPY
     Dates: start: 20020101, end: 20080101
  4. PREMPHASE 14/14 [Suspect]
     Indication: HORMONE REPLACEMENT THERAPY
     Dates: start: 19960101, end: 19970101
  5. ACTIVELLA [Suspect]
     Indication: HORMONE REPLACEMENT THERAPY
     Dates: start: 20000801, end: 20001101
  6. FEMHRT [Suspect]
     Indication: HORMONE REPLACEMENT THERAPY
     Dates: start: 20020101, end: 20020101
  7. OGEN [Suspect]
     Indication: HORMONE REPLACEMENT THERAPY
     Dates: start: 20020101, end: 20030101

REACTIONS (1)
  - BREAST CANCER [None]
